FAERS Safety Report 20179729 (Version 3)
Quarter: 2022Q2

REPORT INFORMATION
  Report Type: Report from Study
  Country: IN (occurrence: IN)
  Receive Date: 20211214
  Receipt Date: 20220407
  Transmission Date: 20220720
  Serious: Yes (Other)
  Sender: FDA-Public Use
  Company Number: IN-NOVARTISPH-PHHY2019IN030951

PATIENT
  Age: 68 Year
  Sex: Male

DRUGS (1)
  1. TASIGNA [Suspect]
     Active Substance: NILOTINIB
     Indication: Chronic myeloid leukaemia
     Dosage: 400 MG, BID
     Route: 048
     Dates: start: 201711, end: 20220106

REACTIONS (6)
  - Hypertension [Not Recovered/Not Resolved]
  - Constipation [Recovered/Resolved]
  - Visual impairment [Not Recovered/Not Resolved]
  - Vertigo [Unknown]
  - White blood cell count increased [Unknown]
  - Drug ineffective [Unknown]

NARRATIVE: CASE EVENT DATE: 20190101
